FAERS Safety Report 5489953-0 (Version None)
Quarter: 2007Q4

REPORT INFORMATION
  Report Type: 
  Country: None (occurrence: None)
  Receive Date: 20071018
  Receipt Date: 20071010
  Transmission Date: 20080405
  Serious: Yes (Hospitalization, Other)
  Sender: FDA-Public Use
  Company Number: US-SHR-US-2007-029639

PATIENT
  Age: 32 Year
  Sex: Female
  Weight: 74.83 kg

DRUGS (1)
  1. MIRENA [Suspect]
     Indication: CONTRACEPTION
     Dosage: 20 A?G/DAY, CONT
     Route: 015
     Dates: start: 20070516, end: 20070814

REACTIONS (4)
  - CONVULSION [None]
  - ENCEPHALOPATHY [None]
  - OVARIAN CYST [None]
  - SYNCOPE [None]
